FAERS Safety Report 12910801 (Version 1)
Quarter: 2016Q4

REPORT INFORMATION
  Report Type: Spontaneous
  Country: US (occurrence: US)
  Receive Date: 20161104
  Receipt Date: 20161104
  Transmission Date: 20170207
  Serious: Yes (Death, Hospitalization)
  Sender: FDA-Public Use
  Company Number: US-JNJFOC-20160929544

PATIENT
  Age: 67 Year
  Sex: Male

DRUGS (2)
  1. XARELTO [Suspect]
     Active Substance: RIVAROXABAN
     Indication: PULMONARY EMBOLISM
     Route: 048
     Dates: start: 201409, end: 20150131
  2. XARELTO [Suspect]
     Active Substance: RIVAROXABAN
     Indication: INFARCTION
     Route: 048
     Dates: start: 201409, end: 20150131

REACTIONS (1)
  - Rectal haemorrhage [Fatal]

NARRATIVE: CASE EVENT DATE: 20150131
